FAERS Safety Report 11848475 (Version 3)
Quarter: 2020Q3

REPORT INFORMATION
  Report Type: Other
  Country: DE (occurrence: DE)
  Receive Date: 20151218
  Receipt Date: 20200930
  Transmission Date: 20201102
  Serious: Yes (Death, Other)
  Sender: FDA-Public Use
  Company Number: DE-ROCHE-1676611

PATIENT

DRUGS (4)
  1. PREDNISOLONE. [Suspect]
     Active Substance: PREDNISOLONE
     Dosage: (DESCENDING DAILY DOSES OF 50, 25, 20, 15, 10, 5MG FOR 1 WEEK EACH)
     Route: 065
  2. PREDNISOLONE. [Suspect]
     Active Substance: PREDNISOLONE
     Indication: ACQUIRED HAEMOPHILIA
     Dosage: 75 MG FOR PATIENTS ,60 KG, 100 MG FOR 60?100 KG, 150MG FOR } 100 KG) INWEEKS 1 TO 3. S
     Route: 065
  3. CYCLOPHOSPHAMIDE. [Suspect]
     Active Substance: CYCLOPHOSPHAMIDE
     Indication: ACQUIRED HAEMOPHILIA
     Dosage: (100 MG FOR { 60 KG, 150 MG FOR 60?100 KG, 200 MG FOR }100 KG) IN WEEKS 4 TO 6,
     Route: 065
  4. RITUXIMAB. [Suspect]
     Active Substance: RITUXIMAB
     Indication: ACQUIRED HAEMOPHILIA
     Dosage: WEEK 7 TO 10
     Route: 042

REACTIONS (17)
  - Hepatic enzyme increased [Unknown]
  - Sepsis [Fatal]
  - Candida infection [Fatal]
  - Muscle disorder [Unknown]
  - Hypertension [Unknown]
  - Shock [Unknown]
  - Cytopenia [Unknown]
  - Cushing^s syndrome [Unknown]
  - Pulmonary oedema [Unknown]
  - Hyperglycaemia [Unknown]
  - Mucosal inflammation [Unknown]
  - Mental disorder [Unknown]
  - Herpes zoster [Fatal]
  - Impaired healing [Unknown]
  - Depression [Unknown]
  - Gastrointestinal ulcer [Unknown]
  - Endocarditis [Unknown]
